FAERS Safety Report 8169036-1 (Version None)
Quarter: 2012Q1

REPORT INFORMATION
  Report Type: 
  Country: None (occurrence: None)
  Receive Date: 20120227
  Receipt Date: 20120222
  Transmission Date: 20120608
  Serious: No
  Sender: FDA-Public Use
  Company Number: US-PFIZER INC-2012047677

PATIENT
  Sex: Female

DRUGS (2)
  1. LYRICA [Suspect]
     Dosage: UNK
  2. LYRICA [Suspect]
     Indication: ANXIETY
     Dosage: 50 MG, 2X/DAY

REACTIONS (5)
  - VOMITING [None]
  - PAIN [None]
  - HEADACHE [None]
  - TREMOR [None]
  - WITHDRAWAL SYNDROME [None]
